FAERS Safety Report 6134316-8 (Version None)
Quarter: 2009Q1

REPORT INFORMATION
  Report Type: 
  Country: None (occurrence: None)
  Receive Date: 20090325
  Receipt Date: 20090312
  Transmission Date: 20090719
  Serious: Yes (Hospitalization)
  Sender: FDA-Public Use
  Company Number: 2009-193423-NL

PATIENT
  Sex: Male

DRUGS (1)
  1. MIRTAZAPINE [Suspect]
     Indication: MUSCULOSKELETAL PAIN
     Dosage: 0.5 DF
     Dates: start: 20070214

REACTIONS (15)
  - ABDOMINAL PAIN UPPER [None]
  - ARTHRALGIA [None]
  - COUGH [None]
  - DRY EYE [None]
  - DRY MOUTH [None]
  - DRY THROAT [None]
  - HEADACHE [None]
  - HYPERHIDROSIS [None]
  - INSOMNIA [None]
  - MYALGIA [None]
  - NASAL DRYNESS [None]
  - NAUSEA [None]
  - SEDATION [None]
  - SNEEZING [None]
  - WEIGHT INCREASED [None]
